FAERS Safety Report 5213223-9 (Version None)
Quarter: 2007Q1

REPORT INFORMATION
  Report Type: 
  Country: None (occurrence: None)
  Receive Date: 20070118
  Receipt Date: 20070118
  Transmission Date: 20070707
  Serious: Yes (Other)
  Sender: FDA-Public Use
  Company Number: None

PATIENT
  Age: 36 Year
  Sex: Female
  Weight: 81.6475 kg

DRUGS (6)
  1. ZOLOFT [Suspect]
     Indication: DEPRESSION
     Dosage: 1 100MG DAY PO
     Route: 048
     Dates: start: 20061201, end: 20070101
  2. ZOLOFT [Suspect]
     Indication: GENERALISED ANXIETY DISORDER
     Dosage: 1 100MG DAY PO
     Route: 048
     Dates: start: 20061201, end: 20070101
  3. ZOLOFT [Suspect]
     Indication: DEPRESSION
     Dosage: 1 100MG DAY PO
     Route: 048
     Dates: start: 20051206
  4. ZOLOFT [Suspect]
     Indication: GENERALISED ANXIETY DISORDER
     Dosage: 1 100MG DAY PO
     Route: 048
     Dates: start: 20051206
  5. ZOLOFT [Suspect]
     Indication: DEPRESSION
     Dosage: 1 100MG DAY PO
     Route: 048
     Dates: start: 20060117
  6. ZOLOFT [Suspect]
     Indication: GENERALISED ANXIETY DISORDER
     Dosage: 1 100MG DAY PO
     Route: 048
     Dates: start: 20060117

REACTIONS (3)
  - ANXIETY [None]
  - DRUG EFFECT DECREASED [None]
  - THERAPEUTIC RESPONSE UNEXPECTED WITH DRUG SUBSTITUTION [None]
